FAERS Safety Report 20363019 (Version 9)
Quarter: 2025Q1

REPORT INFORMATION
  Report Type: Report from Study
  Country: CA (occurrence: CA)
  Receive Date: 20220121
  Receipt Date: 20250319
  Transmission Date: 20250409
  Serious: Yes (Other)
  Sender: BAUSCH AND LOMB
  Company Number: CA-BAUSCH-BL-2021-023980

PATIENT
  Age: 57 Year
  Sex: Female
  Weight: 70.37 kg

DRUGS (12)
  1. SILIQ [Suspect]
     Active Substance: BRODALUMAB
     Indication: Psoriasis
     Dosage: 210MG/ 1.5 ML (WEEK 0,1,2)
     Route: 058
     Dates: start: 20210630, end: 202107
  2. SILIQ [Suspect]
     Active Substance: BRODALUMAB
     Dosage: 210MG/ 1.5 ML, Q2 WEEKS
     Route: 058
     Dates: start: 202109, end: 202109
  3. SILIQ [Suspect]
     Active Substance: BRODALUMAB
     Dosage: 210MG/ 1.5 ML
     Route: 058
     Dates: start: 202109
  4. SILIQ [Suspect]
     Active Substance: BRODALUMAB
     Dosage: 210MG/ 1.5 ML, Q 2 WEEKS
     Route: 058
  5. ASTRAZENECA COVID-19 VACCINE [Suspect]
     Active Substance: AZD-1222
     Indication: COVID-19 immunisation
     Route: 065
  6. AMLODIPINE BESYLATE [Concomitant]
     Active Substance: AMLODIPINE BESYLATE
     Indication: Blood pressure abnormal
  7. CLONIDINE HYDROCHLORIDE [Concomitant]
     Active Substance: CLONIDINE HYDROCHLORIDE
     Indication: Blood pressure abnormal
  8. HYDROCHLOROTHIAZIDE [Concomitant]
     Active Substance: HYDROCHLOROTHIAZIDE
     Indication: Blood pressure abnormal
  9. LANSOPRAZOLE [Concomitant]
     Active Substance: LANSOPRAZOLE
     Indication: Hiatus hernia
     Dosage: CAPSULE, DELAYED RELEASE
  10. ESCITALOPRAM OXALATE [Concomitant]
     Active Substance: ESCITALOPRAM OXALATE
     Indication: Anxiety
  11. ESCITALOPRAM OXALATE [Concomitant]
     Active Substance: ESCITALOPRAM OXALATE
  12. ASTRAZENECA COVID-19 VACCINE [Concomitant]
     Active Substance: AZD-1222
     Indication: Immunisation

REACTIONS (14)
  - Pericarditis [Recovering/Resolving]
  - Lacrimation increased [Not Recovered/Not Resolved]
  - Throat irritation [Not Recovered/Not Resolved]
  - Hypersomnia [Not Recovered/Not Resolved]
  - Psoriasis [Not Recovered/Not Resolved]
  - Costochondritis [Recovering/Resolving]
  - Periarthritis [Recovering/Resolving]
  - Impaired work ability [Unknown]
  - Myalgia [Not Recovered/Not Resolved]
  - Oral pain [Unknown]
  - Arthralgia [Not Recovered/Not Resolved]
  - Off label use [Unknown]
  - Intentional dose omission [Unknown]
  - Extra dose administered [Unknown]

NARRATIVE: CASE EVENT DATE: 20210101
